FAERS Safety Report 10034096 (Version 1)
Quarter: 2014Q1

REPORT INFORMATION
  Report Type: Spontaneous
  Country: US (occurrence: None)
  Receive Date: 20140324
  Receipt Date: 20140324
  Transmission Date: 20141002
  Serious: Yes (Disabling, Other)
  Sender: FDA-Public Use
  Company Number: None

PATIENT
  Age: 22 Year
  Sex: Female
  Weight: 89.81 kg

DRUGS (1)
  1. MINOCYCLINE [Suspect]
     Dosage: 1 CAPSULE
     Route: 048
     Dates: start: 20131216, end: 20140313

REACTIONS (4)
  - Diplopia [None]
  - Headache [None]
  - Papilloedema [None]
  - Intracranial pressure increased [None]
